FAERS Safety Report 6243963-4 (Version None)
Quarter: 2009Q2

REPORT INFORMATION
  Report Type: 
  Country: None (occurrence: None)
  Receive Date: 20090623
  Receipt Date: 20090615
  Transmission Date: 20091009
  Serious: Yes (Hospitalization)
  Sender: FDA-Public Use
  Company Number: 2009SP001538

PATIENT
  Sex: Female

DRUGS (11)
  1. LUNESTA [Suspect]
     Indication: INSOMNIA
     Dosage: PRN; ORAL, 2 MG; PRN; ORAL, 1 MG; PRN; ORAL
     Route: 048
     Dates: start: 20090601, end: 20090601
  2. SYNTHROID (CON.) [Concomitant]
  3. CARDIZEM /00489701/ (CON.) [Concomitant]
  4. IRON (CON.) [Concomitant]
  5. PLAVIX /01220701/ (CON.) [Concomitant]
  6. CRESTOR /01588601/ (CON.) [Concomitant]
  7. NEXIUM /01479302/ (CON.) [Concomitant]
  8. HYZAAR (CON.) [Concomitant]
  9. LOPRESSOR (CON.) [Concomitant]
  10. SITAGLIPTIN (CON.) [Concomitant]
  11. PREV MEDS = UNKNOWN [Concomitant]

REACTIONS (5)
  - DYSGEUSIA [None]
  - GASTRIC POLYPS [None]
  - NAUSEA [None]
  - PRODUCT TASTE ABNORMAL [None]
  - WRONG TECHNIQUE IN DRUG USAGE PROCESS [None]
